FAERS Safety Report 9681570 (Version 2)
Quarter: 2013Q4

REPORT INFORMATION
  Report Type: Spontaneous
  Country: JP (occurrence: JP)
  Receive Date: 20131111
  Receipt Date: 20131111
  Transmission Date: 20140711
  Serious: Yes (Other)
  Sender: FDA-Public Use
  Company Number: JP-TEVA-421605ISR

PATIENT
  Age: 50 Year
  Sex: Male

DRUGS (1)
  1. SAXIZON FOR INJECTION 100MG [Suspect]
     Indication: URTICARIA
     Dosage: 100 MILLIGRAM DAILY;
     Route: 042
     Dates: start: 20130717, end: 20130717

REACTIONS (3)
  - Loss of consciousness [Recovered/Resolved]
  - Blood pressure increased [Recovered/Resolved]
  - Gait disturbance [Recovered/Resolved]
